FAERS Safety Report 5933253-9 (Version None)
Quarter: 2008Q4

REPORT INFORMATION
  Report Type: 
  Country: None (occurrence: None)
  Receive Date: 20081028
  Receipt Date: 20081023
  Transmission Date: 20090506
  Serious: Yes (Hospitalization)
  Sender: FDA-Public Use
  Company Number: FR-ROXANE LABORATORIES, INC.-2008-RO-00150RO

PATIENT
  Age: 3 Year
  Sex: Female

DRUGS (3)
  1. CLARITHROMYCIN [Suspect]
     Indication: ACUTE SINUSITIS
     Dosage: 300MG
  2. CARBAMAZEPINE [Suspect]
     Indication: PARTIAL SEIZURES
     Dosage: 200MG
  3. CARBAMAZEPINE [Suspect]
     Indication: DYSPLASIA
     Dosage: 160MG

REACTIONS (2)
  - DRUG INTERACTION [None]
  - DRUG TOXICITY [None]
